FAERS Safety Report 12486678 (Version 3)
Quarter: 2016Q4

REPORT INFORMATION
  Report Type: Spontaneous
  Country: ES (occurrence: ES)
  Receive Date: 20160621
  Receipt Date: 20161011
  Transmission Date: 20170207
  Serious: Yes (Other)
  Sender: FDA-Public Use
  Company Number: ES-GILEAD-2015-0180276

PATIENT
  Age: 68 Year
  Sex: Female

DRUGS (9)
  1. HIDROCLOROTIAZIDE [Concomitant]
     Active Substance: HYDROCHLOROTHIAZIDE
  2. TENOFOVIR DISOPROXIL FUMARATE. [Suspect]
     Active Substance: TENOFOVIR DISOPROXIL FUMARATE
     Indication: HEPATITIS B
     Dosage: 300 MG, QD
     Route: 065
     Dates: start: 201001
  3. IRBESARTAN. [Concomitant]
     Active Substance: IRBESARTAN
  4. ESCITALOPRAM [Concomitant]
     Active Substance: ESCITALOPRAM OXALATE
  5. PITAVASTATIN [Concomitant]
     Active Substance: PITAVASTATIN
  6. TORASEMIDE [Concomitant]
     Active Substance: TORSEMIDE
  7. TENOFOVIR DISOPROXIL FUMARATE. [Suspect]
     Active Substance: TENOFOVIR DISOPROXIL FUMARATE
     Dosage: 300 MG, QOD
     Route: 065
     Dates: start: 20151002, end: 201511
  8. ENTECAVIR. [Concomitant]
     Active Substance: ENTECAVIR
     Indication: HEPATITIS B
     Dosage: UNK
     Route: 065
     Dates: start: 201511
  9. OMEPRAZOL                          /00661201/ [Concomitant]
     Active Substance: OMEPRAZOLE

REACTIONS (8)
  - Hepatitis B DNA increased [Unknown]
  - Asthenia [Unknown]
  - Liver disorder [Unknown]
  - Blood creatinine increased [Unknown]
  - Abdominal pain [Unknown]
  - Transaminases increased [Unknown]
  - Nephropathy toxic [Unknown]
  - Drug ineffective [Unknown]
